FAERS Safety Report 4534881-8 (Version None)
Quarter: 2004Q4

REPORT INFORMATION
  Report Type: 
  Country: None (occurrence: None)
  Receive Date: 20041222
  Receipt Date: 20040614
  Transmission Date: 20050328
  Serious: No
  Sender: FDA-Public Use
  Company Number: US-BRISTOL-MYERS SQUIBB COMPANY-12614087

PATIENT
  Age: 83 Year
  Sex: Female

DRUGS (4)
  1. PRAVACHOL [Suspect]
     Indication: BLOOD CHOLESTEROL INCREASED
     Dosage: INITIATED ^SEVERAL YEARS AGO.^
     Route: 048
     Dates: end: 20040604
  2. ALTACE [Concomitant]
  3. EVISTA [Concomitant]
  4. ASPIRIN [Concomitant]

REACTIONS (1)
  - DYSKINESIA [None]
